FAERS Safety Report 9217303 (Version 1)
Quarter: 2013Q2

REPORT INFORMATION
  Report Type: Spontaneous
  Country: GB (occurrence: GB)
  Receive Date: 20130408
  Receipt Date: 20130408
  Transmission Date: 20140414
  Serious: Yes (Death)
  Sender: FDA-Public Use
  Company Number: GB-ROCHE-1205921

PATIENT
  Sex: 0

DRUGS (1)
  1. ACTILYSE [Suspect]
     Indication: PULMONARY EMBOLISM
     Route: 065

REACTIONS (1)
  - Cardiac arrest [Fatal]
